FAERS Safety Report 13864463 (Version 3)
Quarter: 2017Q3

REPORT INFORMATION
  Report Type: Report from Study
  Country: None (occurrence: ES)
  Receive Date: 20170814
  Receipt Date: 20170912
  Transmission Date: 20171127
  Serious: Yes (Hospitalization, Other)
  Sender: FDA-Public Use
  Company Number: ES-ABBVIE-17K-144-2069243-00

PATIENT
  Age: 72 Year
  Sex: Male

DRUGS (1)
  1. DUODOPA [Suspect]
     Active Substance: CARBIDOPA\LEVODOPA
     Indication: PARKINSON^S DISEASE
     Route: 050
     Dates: start: 20170526, end: 201709

REACTIONS (7)
  - Acute myocardial infarction [Recovering/Resolving]
  - Aggression [Recovered/Resolved]
  - Aggression [Recovering/Resolving]
  - Cognitive disorder [Not Recovered/Not Resolved]
  - Restlessness [Recovering/Resolving]
  - Extra dose administered [Unknown]
  - Acute myocardial infarction [Recovered/Resolved]

NARRATIVE: CASE EVENT DATE: 2017
